FAERS Safety Report 7873565-5 (Version None)
Quarter: 2011Q4

REPORT INFORMATION
  Report Type: 
  Country: None (occurrence: None)
  Receive Date: 20111030
  Receipt Date: 20110505
  Transmission Date: 20120403
  Serious: No
  Sender: FDA-Public Use
  Company Number: US-AMGEN-USASP2011022416

PATIENT
  Age: 42 Year
  Sex: Male

DRUGS (2)
  1. ENBREL [Suspect]
     Dates: start: 20101223
  2. ENBREL [Suspect]
     Indication: ANKYLOSING SPONDYLITIS
     Dosage: 50 MG, QWK
     Dates: start: 20101223

REACTIONS (9)
  - DYSPHAGIA [None]
  - MALAISE [None]
  - SPEECH DISORDER [None]
  - BURNING SENSATION [None]
  - FEELING ABNORMAL [None]
  - INJECTION SITE PAIN [None]
  - HYPOAESTHESIA [None]
  - GENERALISED ERYTHEMA [None]
  - BLOOD PRESSURE INCREASED [None]
